FAERS Safety Report 5134042-8 (Version None)
Quarter: 2006Q4

REPORT INFORMATION
  Report Type: 
  Country: None (occurrence: None)
  Receive Date: 20061019
  Receipt Date: 20061011
  Transmission Date: 20070319
  Serious: Yes (Life-Threatening)
  Sender: FDA-Public Use
  Company Number: HQWYE154126SEP06

PATIENT
  Age: 78 Year
  Sex: Female

DRUGS (12)
  1. MYLOTARG [Suspect]
     Indication: ACUTE MYELOID LEUKAEMIA
     Dosage: 9 MG/M^2 1X PER 1 DAY INTRAVENOUS DRIP
     Route: 041
     Dates: start: 20060615, end: 20060615
  2. FOSMICIN S (FOSFOMYCIN SODIUM) [Concomitant]
  3. MAXIPIME [Concomitant]
  4. NIZATIDINE [Concomitant]
  5. SUCRALFATE [Concomitant]
  6. LASIX [Concomitant]
  7. DAUNORUBICIN HYDROCHLORIDE [Concomitant]
  8. ENOCITAMINE (ENOCITABINE) [Concomitant]
  9. ENOCITAMINE (ENOCITABINE) [Concomitant]
  10. ETOPOSIDE [Concomitant]
  11. CARBENIN (BETAMIPRON/PANIPENEM) [Concomitant]
  12. MINOCYCLINE HYDROCHLORIDE [Concomitant]

REACTIONS (11)
  - ACUTE MYELOID LEUKAEMIA [None]
  - BLOOD LACTATE DEHYDROGENASE INCREASED [None]
  - DISEASE PROGRESSION [None]
  - EATING DISORDER [None]
  - FEBRILE NEUTROPENIA [None]
  - HYPERURICAEMIA [None]
  - HYPOPROTEINAEMIA [None]
  - INFECTION [None]
  - INFUSION RELATED REACTION [None]
  - PANCYTOPENIA [None]
  - SEPSIS [None]
